FAERS Safety Report 5601074-2 (Version None)
Quarter: 2008Q1

REPORT INFORMATION
  Report Type: 
  Country: None (occurrence: None)
  Receive Date: 20080124
  Receipt Date: 20080115
  Transmission Date: 20080703
  Serious: No
  Sender: FDA-Public Use
  Company Number: US-ASTRAZENECA-2006UW07774

PATIENT
  Age: 19978 Day
  Sex: Male
  Weight: 92.7 kg

DRUGS (4)
  1. SEROQUEL [Suspect]
     Indication: BIPOLAR DISORDER
     Route: 048
     Dates: start: 19990819, end: 20010719
  2. ABILIFY [Concomitant]
     Dates: start: 20060101, end: 20070101
  3. ZOLOFT [Concomitant]
     Dates: start: 20060101, end: 20070101
  4. LITHIUM CARBONATE [Concomitant]
     Dates: start: 20060101, end: 20070101

REACTIONS (4)
  - COELIAC DISEASE [None]
  - DIABETES MELLITUS [None]
  - DYSPNOEA [None]
  - INFECTION [None]
